FAERS Safety Report 11073336 (Version 2)
Quarter: 2015Q2

REPORT INFORMATION
  Report Type: Report from Study
  Country: US (occurrence: US)
  Receive Date: 20150428
  Receipt Date: 20150527
  Transmission Date: 20150821
  Serious: Yes (Other)
  Sender: FDA-Public Use
  Company Number: PHEH2015US004839

PATIENT
  Age: 44 Year
  Sex: Male

DRUGS (1)
  1. GILENYA [Suspect]
     Active Substance: FINGOLIMOD HYDROCHLORIDE
     Indication: MULTIPLE SCLEROSIS
     Dosage: 0.5 MG, QD
     Route: 048
     Dates: start: 20150305

REACTIONS (13)
  - Confusional state [Unknown]
  - Gait disturbance [Unknown]
  - Somnolence [Unknown]
  - Malaise [Unknown]
  - Head injury [Unknown]
  - Blindness [Unknown]
  - Rib fracture [Unknown]
  - Fall [Unknown]
  - Palpitations [Recovered/Resolved]
  - Fatigue [Unknown]
  - Dysarthria [Unknown]
  - Feeling abnormal [Unknown]
  - Movement disorder [Unknown]

NARRATIVE: CASE EVENT DATE: 20150305
